FAERS Safety Report 4396852-4 (Version None)
Quarter: 2004Q3

REPORT INFORMATION
  Report Type: 
  Country: None (occurrence: None)
  Receive Date: 20040713
  Receipt Date: 20040713
  Transmission Date: 20050211
  Serious: No
  Sender: FDA-Public Use
  Company Number: None

PATIENT
  Age: 54 Year
  Sex: Male
  Weight: 99.7913 kg

DRUGS (2)
  1. PEG-INTRON [Suspect]
     Indication: HEPATITIS C
     Dosage: ONE INJECTION WK
     Dates: start: 20020202
  2. REBETOL [Suspect]
     Indication: HEPATITIS C
     Dosage: DAILY
     Dates: start: 20020725

REACTIONS (6)
  - AMNESIA [None]
  - BLINDNESS [None]
  - DYSPNOEA [None]
  - FATIGUE [None]
  - PAIN [None]
  - SKIN LESION [None]
